FAERS Safety Report 7647535-6 (Version None)
Quarter: 2011Q3

REPORT INFORMATION
  Report Type: 
  Country: None (occurrence: None)
  Receive Date: 20110801
  Receipt Date: 20110726
  Transmission Date: 20111222
  Serious: Yes (Hospitalization)
  Sender: FDA-Public Use
  Company Number: KR-GLAXOSMITHKLINE-B0733754A

PATIENT
  Age: 50 Year
  Sex: Female

DRUGS (4)
  1. VINORELBINE [Concomitant]
  2. TYKERB [Suspect]
     Indication: PRODUCT USED FOR UNKNOWN INDICATION
     Dosage: 1250MG PER DAY
     Route: 065
     Dates: start: 20110714
  3. XELODA [Suspect]
     Indication: PRODUCT USED FOR UNKNOWN INDICATION
     Route: 065
  4. GEMZAR [Concomitant]

REACTIONS (5)
  - OEDEMA DUE TO CARDIAC DISEASE [None]
  - PULMONARY OEDEMA [None]
  - CARBOHYDRATE ANTIGEN 125 INCREASED [None]
  - DISEASE PROGRESSION [None]
  - SKIN LESION [None]
